FAERS Safety Report 15300043 (Version 4)
Quarter: 2018Q4

REPORT INFORMATION
  Report Type: Spontaneous
  Country: US (occurrence: US)
  Receive Date: 20180821
  Receipt Date: 20181022
  Transmission Date: 20190204
  Serious: Yes (Hospitalization)
  Sender: FDA-Public Use
  Company Number: US-PFIZER INC-2018333877

PATIENT
  Age: 68 Year
  Sex: Male

DRUGS (8)
  1. IMBRUVICA [Interacting]
     Active Substance: IBRUTINIB
     Indication: NON-HODGKIN^S LYMPHOMA
     Dosage: 140 MG, 1X/DAY
     Route: 048
     Dates: start: 20180501, end: 20180613
  2. FLUCONAZOLE. [Suspect]
     Active Substance: FLUCONAZOLE
     Dosage: UNK
     Route: 065
  3. IMBRUVICA [Interacting]
     Active Substance: IBRUTINIB
     Dosage: 140 MG, 1X/DAY
     Route: 048
     Dates: start: 2018, end: 20180614
  4. IMBRUVICA [Interacting]
     Active Substance: IBRUTINIB
     Dosage: 140 MG, 1X/DAY
     Route: 048
     Dates: start: 2018, end: 20180503
  5. TAMSULOSIN [Concomitant]
     Active Substance: TAMSULOSIN
     Dosage: UNK
     Route: 065
  6. MULTIVITAMINS /00116001/ [Concomitant]
     Active Substance: VITAMINS
     Dosage: UNK
  7. VITAMIN C [Concomitant]
     Active Substance: ASCORBIC ACID
     Dosage: UNK
  8. TYLENOL [Concomitant]
     Active Substance: ACETAMINOPHEN
     Dosage: UNK

REACTIONS (2)
  - Feeling abnormal [Recovered/Resolved]
  - Labelled drug-drug interaction medication error [Unknown]

NARRATIVE: CASE EVENT DATE: 2018
